FAERS Safety Report 9589124 (Version 2)
Quarter: 2013Q4

REPORT INFORMATION
  Report Type: Spontaneous
  Country: US (occurrence: US)
  Receive Date: 20131003
  Receipt Date: 20131003
  Transmission Date: 20140711
  Serious: No
  Sender: FDA-Public Use
  Company Number: US-AMGEN-USASP2012066190

PATIENT
  Age: 15 Year
  Sex: Female
  Weight: 60.77 kg

DRUGS (3)
  1. ENBREL [Suspect]
     Indication: RHEUMATOID ARTHRITIS
     Dosage: 50 MG, QWK
     Dates: start: 20120723
  2. CELEBREX [Concomitant]
     Dosage: 200 MG, BID
     Dates: start: 20120328
  3. TYLENOL                            /00020001/ [Concomitant]
     Dosage: UNK UNK, PRN

REACTIONS (2)
  - Feeling cold [Not Recovered/Not Resolved]
  - Injection site pain [Recovering/Resolving]
